FAERS Safety Report 21304394 (Version 1)
Quarter: 2022Q3

REPORT INFORMATION
  Report Type: Spontaneous
  Country: US (occurrence: None)
  Receive Date: 20220907
  Receipt Date: 20220907
  Transmission Date: 20221027
  Serious: No
  Sender: FDA-Public Use
  Company Number: US-ARIS GLOBAL-202108-1351

PATIENT
  Age: 70 Year
  Sex: Female

DRUGS (16)
  1. OXERVATE [Suspect]
     Active Substance: CENEGERMIN-BKBJ
     Indication: Neurotrophic keratopathy
     Route: 047
     Dates: start: 20210526, end: 20210719
  2. OXERVATE [Suspect]
     Active Substance: CENEGERMIN-BKBJ
     Route: 047
     Dates: start: 20210810, end: 20211005
  3. OXERVATE [Suspect]
     Active Substance: CENEGERMIN-BKBJ
     Route: 047
     Dates: start: 20211026, end: 20211221
  4. OXERVATE [Suspect]
     Active Substance: CENEGERMIN-BKBJ
     Route: 047
     Dates: start: 20211221, end: 20220215
  5. OXERVATE [Suspect]
     Active Substance: CENEGERMIN-BKBJ
     Route: 047
     Dates: start: 20220215, end: 20220412
  6. OXERVATE [Suspect]
     Active Substance: CENEGERMIN-BKBJ
     Route: 047
     Dates: start: 20220412
  7. SERUM TEARS [Concomitant]
  8. LUTEIN [Concomitant]
     Active Substance: LUTEIN
  9. MENAQUINONE 6 [Concomitant]
     Active Substance: MENAQUINONE 6
  10. VITAMIN K [Concomitant]
     Active Substance: PHYTONADIONE
  11. VITAMIN C [Concomitant]
     Active Substance: ASCORBIC ACID
  12. VITAMIN D-400 [Concomitant]
  13. VITAMIN E [Concomitant]
     Active Substance: .ALPHA.-TOCOPHEROL
  14. FISH OIL [Concomitant]
     Active Substance: FISH OIL
  15. ACYCLOVIR [Concomitant]
     Active Substance: ACYCLOVIR
     Indication: Herpes zoster
     Route: 048
     Dates: start: 201807
  16. LOTEMAX [Concomitant]
     Active Substance: LOTEPREDNOL ETABONATE
     Indication: Keratitis
     Dosage: AT BEDTIME
     Route: 061
     Dates: start: 202108

REACTIONS (4)
  - Disease recurrence [Not Recovered/Not Resolved]
  - Ocular hyperaemia [Unknown]
  - Eye pain [Unknown]
  - Product administration error [Unknown]

NARRATIVE: CASE EVENT DATE: 20210812
